FAERS Safety Report 13280847 (Version 1)
Quarter: 2017Q1

REPORT INFORMATION
  Report Type: Report from Study
  Country: US (occurrence: US)
  Receive Date: 20170301
  Receipt Date: 20170301
  Transmission Date: 20170428
  Serious: No
  Sender: FDA-Public Use
  Company Number: US-AMGEN-USASL2017024689

PATIENT
  Age: 60 Year
  Sex: Female

DRUGS (1)
  1. ENBREL [Suspect]
     Active Substance: ETANERCEPT
     Indication: RHEUMATOID ARTHRITIS
     Dosage: 50 MG, QWK
     Route: 065

REACTIONS (8)
  - Influenza like illness [Unknown]
  - Purulence [Unknown]
  - Respiratory tract congestion [Unknown]
  - Arthropod bite [Unknown]
  - Head discomfort [Unknown]
  - Erythema [Unknown]
  - Swelling [Unknown]
  - Productive cough [Not Recovered/Not Resolved]
